FAERS Safety Report 25256043 (Version 1)
Quarter: 2025Q2

REPORT INFORMATION
  Report Type: Spontaneous
  Country: US (occurrence: None)
  Receive Date: 20250429
  Receipt Date: 20250429
  Transmission Date: 20250716
  Serious: No
  Sender: FDA-CTU
  Company Number: None

PATIENT
  Age: 78 Year
  Sex: Female
  Weight: 35.55 kg

DRUGS (6)
  1. METOPROLOL TARTRATE [Suspect]
     Active Substance: METOPROLOL TARTRATE
     Indication: Hypertension
     Dosage: OTHER QUANTITY : .5 TABLET(S);?FREQUENCY : TWICE A DAY;?
     Route: 048
     Dates: start: 20250412, end: 20250418
  2. VALSARTAN [Concomitant]
     Active Substance: VALSARTAN
  3. PROLIA [Concomitant]
     Active Substance: DENOSUMAB
  4. VITAMINS [Concomitant]
     Active Substance: VITAMINS
  5. STOOL SOFTENER (DOCUSATE) [Concomitant]
     Active Substance: DOCUSATE
  6. REFRESH SOLUTION NOS [Concomitant]
     Active Substance: CARBOXYMETHYLCELLULOSE SODIUM\GLYCERIN

REACTIONS (4)
  - Feeling abnormal [None]
  - Diarrhoea [None]
  - Nonspecific reaction [None]
  - Constipation [None]

NARRATIVE: CASE EVENT DATE: 20250412
